FAERS Safety Report 12708180 (Version 3)
Quarter: 2016Q3

REPORT INFORMATION
  Report Type: Spontaneous
  Country: US (occurrence: US)
  Receive Date: 20160901
  Receipt Date: 20160928
  Transmission Date: 20161109
  Serious: Yes (Hospitalization, Other)
  Sender: FDA-Public Use
  Company Number: US-PFIZER INC-2016408152

PATIENT
  Age: 66 Year
  Sex: Male

DRUGS (13)
  1. NAPROXEN. [Suspect]
     Active Substance: NAPROXEN
     Indication: MUSCLE SPASMS
  2. CYCLOBENZAPRINE [Concomitant]
     Active Substance: CYCLOBENZAPRINE
     Indication: MUSCLE SPASMS
     Dosage: UNK
  3. NAPROXEN. [Suspect]
     Active Substance: NAPROXEN
     Indication: MUSCULOSKELETAL DISORDER
     Dosage: UNK
  4. ASPIRIN. [Concomitant]
     Active Substance: ASPIRIN
     Dosage: UNK
  5. DISULFIRAM. [Concomitant]
     Active Substance: DISULFIRAM
     Dosage: UNK, AS NEEDED
  6. HYDROCHLOROTHIAZIDE. [Suspect]
     Active Substance: HYDROCHLOROTHIAZIDE
     Dosage: UNK
  7. ACETAMINOPHEN. [Concomitant]
     Active Substance: ACETAMINOPHEN
     Indication: MUSCLE SPASMS
     Dosage: UNK
  8. AMLODIPINE [Concomitant]
     Active Substance: AMLODIPINE BESYLATE
     Dosage: UNK
  9. CALCIUM CARBONATE. [Concomitant]
     Active Substance: CALCIUM CARBONATE
     Indication: DYSPEPSIA
     Dosage: UNK
  10. IBUPROFEN. [Suspect]
     Active Substance: IBUPROFEN
     Indication: MUSCULOSKELETAL DISORDER
     Dosage: UNK
  11. TAMSULOSIN [Concomitant]
     Active Substance: TAMSULOSIN
     Dosage: UNK
  12. GLUCOSAMINE [Concomitant]
     Active Substance: GLUCOSAMINE
     Dosage: UNK
  13. TADALAFIL [Concomitant]
     Active Substance: TADALAFIL
     Dosage: UNK, AS NEEDED

REACTIONS (2)
  - Hypercalcaemia [Recovered/Resolved]
  - Acute kidney injury [Unknown]
